FAERS Safety Report 9753183 (Version 2)
Quarter: 2015Q3

REPORT INFORMATION
  Report Type: Spontaneous
  Country: US (occurrence: US)
  Receive Date: 20131213
  Receipt Date: 20150805
  Transmission Date: 20151125
  Serious: No
  Sender: FDA-Public Use
  Company Number: US-GILEAD-2010-0026919

PATIENT
  Age: 59 Year
  Sex: Male
  Weight: 87.54 kg

DRUGS (5)
  1. LETAIRIS [Suspect]
     Active Substance: AMBRISENTAN
     Indication: PULMONARY ARTERIAL HYPERTENSION
     Route: 048
     Dates: start: 20080702
  2. GARLIC. [Concomitant]
     Active Substance: GARLIC
  3. FOLIC ACID. [Concomitant]
     Active Substance: FOLIC ACID
  4. LACTULOSE. [Concomitant]
     Active Substance: LACTULOSE
  5. HYDROXYZINE [Concomitant]
     Active Substance: HYDROXYZINE\HYDROXYZINE HYDROCHLORIDE

REACTIONS (1)
  - Palpitations [Unknown]
